FAERS Safety Report 16168017 (Version 2)
Quarter: 2019Q2

REPORT INFORMATION
  Report Type: Spontaneous
  Country: US (occurrence: US)
  Receive Date: 20190408
  Receipt Date: 20190410
  Transmission Date: 20190711
  Serious: Yes (Other)
  Sender: FDA-Public Use
  Company Number: US-SA-2019SA094868

PATIENT
  Sex: Female

DRUGS (10)
  1. PREDNISONE. [Suspect]
     Active Substance: PREDNISONE
     Dosage: TAPERED DOSE;ATTEMPTS TO TAPER PREDNISONE BELOW 15 MG/DAY
  2. METHOTREXATE. [Suspect]
     Active Substance: METHOTREXATE
     Indication: PULMONARY SARCOIDOSIS
  3. MYCOPHENOLATE MOFETIL. [Suspect]
     Active Substance: MYCOPHENOLATE MOFETIL
     Indication: PULMONARY SARCOIDOSIS
  4. ADALIMUMAB [Concomitant]
     Active Substance: ADALIMUMAB
     Indication: PULMONARY SARCOIDOSIS
  5. HYDROXYCHLOROQUINE SULFATE. [Suspect]
     Active Substance: HYDROXYCHLOROQUINE SULFATE
     Indication: PULMONARY SARCOIDOSIS
  6. PREDNISONE. [Suspect]
     Active Substance: PREDNISONE
     Indication: PULMONARY SARCOIDOSIS
     Dosage: 15 MG, QD
  7. INFLIXIMAB [Concomitant]
     Active Substance: INFLIXIMAB
     Indication: PULMONARY SARCOIDOSIS
  8. MINOCYCLINE HYDROCHLORIDE. [Suspect]
     Active Substance: MINOCYCLINE HYDROCHLORIDE
     Indication: PULMONARY SARCOIDOSIS
  9. LEFLUNOMIDE. [Suspect]
     Active Substance: LEFLUNOMIDE
     Indication: PULMONARY SARCOIDOSIS
  10. AZATHIOPRINE. [Concomitant]
     Active Substance: AZATHIOPRINE
     Indication: PULMONARY SARCOIDOSIS

REACTIONS (8)
  - Hypertension [Unknown]
  - Rebound effect [Recovering/Resolving]
  - Diabetes mellitus [Unknown]
  - Leukopenia [Unknown]
  - Osteopenia [Unknown]
  - Pulmonary sarcoidosis [Recovering/Resolving]
  - Off label use [Unknown]
  - Osteonecrosis [Unknown]
